FAERS Safety Report 8416284-9 (Version None)
Quarter: 2012Q2

REPORT INFORMATION
  Report Type: 
  Country: None (occurrence: None)
  Receive Date: 20120606
  Receipt Date: 20120525
  Transmission Date: 20120825
  Serious: Yes (Other)
  Sender: FDA-Public Use
  Company Number: RU-ELI_LILLY_AND_COMPANY-RU201204008172

PATIENT
  Age: 50 Year
  Sex: Female

DRUGS (7)
  1. ZYPREXA [Suspect]
     Dosage: 10 MG, QD
     Dates: start: 20100201, end: 20100801
  2. CICLADOL [Concomitant]
     Dosage: 4 MG, UNK
  3. AZALEPTIN [Concomitant]
  4. CHLORPROTHIXENE HYDROCHLORIDE [Concomitant]
     Dosage: 50 MG, UNK
  5. ZYPREXA [Suspect]
     Indication: SCHIZOPHRENIA, PARANOID TYPE
     Dosage: 5 MG, QD
     Dates: start: 20091001
  6. SULPIRIDE [Concomitant]
  7. FLUVOXAMINE MALEATE [Concomitant]
     Dosage: 1 DF, EACH EVENING

REACTIONS (2)
  - MUSCLE RIGIDITY [None]
  - POSTURE ABNORMAL [None]
